FAERS Safety Report 7401921-8 (Version None)
Quarter: 2011Q2

REPORT INFORMATION
  Report Type: 
  Country: None (occurrence: None)
  Receive Date: 20110408
  Receipt Date: 20110405
  Transmission Date: 20111010
  Serious: Yes (Life-Threatening, Hospitalization, Other)
  Sender: FDA-Public Use
  Company Number: DE-JNJFOC-20110400485

PATIENT
  Age: 20 Year
  Sex: Male
  Weight: 89 kg

DRUGS (3)
  1. PREDNISOLONE [Concomitant]
     Indication: ILL-DEFINED DISORDER
     Route: 048
  2. METHOTREXATE [Concomitant]
     Indication: ILL-DEFINED DISORDER
  3. SIMPONI [Suspect]
     Indication: PSORIATIC ARTHROPATHY
     Route: 058

REACTIONS (1)
  - DYSPNOEA [None]
